FAERS Safety Report 24453751 (Version 4)
Quarter: 2025Q2

REPORT INFORMATION
  Report Type: Spontaneous
  Country: PK (occurrence: PK)
  Receive Date: 20241017
  Receipt Date: 20250404
  Transmission Date: 20250716
  Serious: Yes (Other)
  Sender: PFIZER
  Company Number: PK-PFIZER INC-PV202400131711

PATIENT
  Age: 54 Year
  Sex: Female
  Weight: 100 kg

DRUGS (6)
  1. TRAZIMERA [Suspect]
     Active Substance: TRASTUZUMAB-QYYP
     Indication: Invasive lobular breast carcinoma
     Route: 042
  2. TRAZIMERA [Suspect]
     Active Substance: TRASTUZUMAB-QYYP
     Indication: Breast cancer female
     Dosage: 440 MG, 3 WEEKLY
     Route: 042
  3. RISEK [OMEPRAZOLE] [Concomitant]
     Indication: Premedication
     Route: 042
  4. PHENIRAMINE [Concomitant]
     Active Substance: PHENIRAMINE
     Route: 042
  5. ZOFRAN [Concomitant]
     Active Substance: ONDANSETRON HYDROCHLORIDE
     Route: 042
  6. MAXOLON [Concomitant]
     Active Substance: METOCLOPRAMIDE HYDROCHLORIDE
     Route: 042

REACTIONS (4)
  - Blood pH increased [Unknown]
  - Red blood cell count decreased [Unknown]
  - Haemoglobin decreased [Unknown]
  - Off label use [Unknown]
